FAERS Safety Report 5519243-9 (Version None)
Quarter: 2007Q4

REPORT INFORMATION
  Report Type: 
  Country: None (occurrence: None)
  Receive Date: 20071116
  Receipt Date: 20071107
  Transmission Date: 20080405
  Serious: Yes (Hospitalization)
  Sender: FDA-Public Use
  Company Number: US-WYE-H01185607

PATIENT
  Age: 60 Year
  Sex: Female
  Weight: 127.12 kg

DRUGS (2)
  1. TYGACIL [Suspect]
     Indication: SKIN INFECTION
     Dosage: 100 MG LOADING DOSE THEN 50 MG Q12H
     Route: 042
  2. TYGACIL [Suspect]
     Indication: CELLULITIS

REACTIONS (1)
  - DRUG INEFFECTIVE [None]
